FAERS Safety Report 9071680 (Version 1)
Quarter: 2013Q1

REPORT INFORMATION
  Report Type: Spontaneous
  Country: US (occurrence: US)
  Receive Date: 20130206
  Receipt Date: 20130206
  Transmission Date: 20140127
  Serious: No
  Sender: FDA-Public Use
  Company Number: US-ALLERGAN-1213335US

PATIENT
  Age: 66 Year
  Sex: Male

DRUGS (2)
  1. RESTASIS? [Suspect]
     Indication: LACRIMAL DISORDER
     Dosage: 2 GTT, BID
     Route: 047
     Dates: end: 20120621
  2. REFRESH TEARS [Concomitant]
     Indication: PRODUCT USED FOR UNKNOWN INDICATION
     Dosage: UNK, PRN
     Route: 047

REACTIONS (4)
  - Eye irritation [Recovering/Resolving]
  - Scleral hyperaemia [Recovering/Resolving]
  - Ocular hyperaemia [Unknown]
  - Eye pain [Unknown]
